FAERS Safety Report 15644731 (Version 2)
Quarter: 2018Q4

REPORT INFORMATION
  Report Type: Spontaneous
  Country: RS (occurrence: RS)
  Receive Date: 20181121
  Receipt Date: 20181219
  Transmission Date: 20190205
  Serious: Yes (Hospitalization, Other)
  Sender: FDA-Public Use
  Company Number: RS-SA-2018SA317282

PATIENT
  Age: 11 Month
  Sex: Male

DRUGS (1)
  1. MYOZYME [Suspect]
     Active Substance: ALGLUCOSIDASE ALFA
     Indication: GLYCOGEN STORAGE DISEASE TYPE II
     Dosage: UNK UNK, UNK
     Route: 041
     Dates: start: 20180426

REACTIONS (8)
  - Respiratory tract infection [Not Recovered/Not Resolved]
  - Peripheral artery thrombosis [Not Recovered/Not Resolved]
  - C-reactive protein abnormal [Unknown]
  - Atelectasis [Unknown]
  - Pneumonia [Unknown]
  - Arterial stenosis [Unknown]
  - Venous thrombosis limb [Unknown]
  - Necrosis [Unknown]

NARRATIVE: CASE EVENT DATE: 20180929
